FAERS Safety Report 11806137 (Version 1)
Quarter: 2015Q4

REPORT INFORMATION
  Report Type: Spontaneous
  Country: DE (occurrence: DE)
  Receive Date: 20151207
  Receipt Date: 20151207
  Transmission Date: 20160305
  Serious: Yes (Hospitalization)
  Sender: FDA-Public Use
  Company Number: DE-WATSON-2015-25992

PATIENT
  Age: 58 Year
  Sex: Male

DRUGS (17)
  1. L-THYROXIN [Concomitant]
     Active Substance: LEVOTHYROXINE SODIUM
     Indication: PRODUCT USED FOR UNKNOWN INDICATION
     Dosage: 50 ?G, DAILY
     Route: 048
  2. MIRTAZAPIN [Concomitant]
     Active Substance: MIRTAZAPINE
     Dosage: 45 MG, DAILY
     Route: 048
     Dates: start: 20150219
  3. LORAZEPAM. [Concomitant]
     Active Substance: LORAZEPAM
     Dosage: 2 MG, DAILY
     Route: 048
     Dates: start: 20150203, end: 20150208
  4. VENLAFAXINE (UNKNOWN) [Suspect]
     Active Substance: VENLAFAXINE HYDROCHLORIDE
     Dosage: 75 MG, DAILY
     Route: 048
     Dates: start: 20150216
  5. RISPERIDONE (UNKNOWN) [Suspect]
     Active Substance: RISPERIDONE
     Indication: PRODUCT USED FOR UNKNOWN INDICATION
     Dosage: 1 MG, DAILY
     Route: 048
     Dates: start: 20150318, end: 20150322
  6. MIRTAZAPIN [Concomitant]
     Active Substance: MIRTAZAPINE
     Indication: PRODUCT USED FOR UNKNOWN INDICATION
     Dosage: 15 MG, DAILY
     Route: 048
     Dates: end: 20150127
  7. LORAZEPAM. [Concomitant]
     Active Substance: LORAZEPAM
     Indication: PRODUCT USED FOR UNKNOWN INDICATION
     Dosage: 1.5 MG, DAILY
     Route: 048
     Dates: start: 20150209, end: 20150222
  8. VENLAFAXINE (UNKNOWN) [Suspect]
     Active Substance: VENLAFAXINE HYDROCHLORIDE
     Dosage: 225 MG, DAILY
     Route: 048
     Dates: start: 20150224, end: 20150302
  9. VENLAFAXINE (UNKNOWN) [Suspect]
     Active Substance: VENLAFAXINE HYDROCHLORIDE
     Dosage: 150 MG, DAILY
     Route: 048
     Dates: start: 20150217, end: 20150223
  10. VENLAFAXINE (UNKNOWN) [Suspect]
     Active Substance: VENLAFAXINE HYDROCHLORIDE
     Dosage: 150 MG, DAILY
     Route: 048
     Dates: start: 20150303, end: 20150305
  11. RISPERIDONE (UNKNOWN) [Suspect]
     Active Substance: RISPERIDONE
     Dosage: 2.5 MG, DAILY
     Route: 048
     Dates: start: 20150314, end: 20150317
  12. MIRTAZAPIN [Concomitant]
     Active Substance: MIRTAZAPINE
     Dosage: 30 MG, DAILY
     Route: 048
     Dates: start: 20150128, end: 20150218
  13. LORAZEPAM. [Concomitant]
     Active Substance: LORAZEPAM
     Dosage: 3 MG, DAILY
     Route: 048
     Dates: start: 20150128, end: 20150129
  14. VENLAFAXINE (UNKNOWN) [Suspect]
     Active Substance: VENLAFAXINE HYDROCHLORIDE
     Indication: PRODUCT USED FOR UNKNOWN INDICATION
     Dosage: 75 MG, DAILY
     Route: 048
     Dates: start: 20150306, end: 20150309
  15. LORAZEPAM. [Concomitant]
     Active Substance: LORAZEPAM
     Dosage: 2.5 MG, DAILY
     Route: 048
     Dates: start: 20150130, end: 20150202
  16. RISPERIDONE (UNKNOWN) [Suspect]
     Active Substance: RISPERIDONE
     Dosage: 1.5 MG, DAILY
     Route: 048
     Dates: start: 20150206, end: 20150313
  17. RISPERIDONE (UNKNOWN) [Suspect]
     Active Substance: RISPERIDONE
     Dosage: 1 MG, DAILY
     Route: 048
     Dates: start: 20150129, end: 20150205

REACTIONS (1)
  - Speech disorder [Recovering/Resolving]

NARRATIVE: CASE EVENT DATE: 20150218
